FAERS Safety Report 7528013-1 (Version None)
Quarter: 2011Q2

REPORT INFORMATION
  Report Type: 
  Country: None (occurrence: None)
  Receive Date: 20110607
  Receipt Date: 20110126
  Transmission Date: 20111010
  Serious: No
  Sender: FDA-Public Use
  Company Number: US-ASTRAZENECA-2011SE05563

PATIENT
  Sex: Female

DRUGS (2)
  1. PRILOSEC [Suspect]
     Dosage: UNKOWN
     Route: 048
  2. PRILOSEC OTC [Suspect]
     Dosage: UNKNOWN
     Route: 048

REACTIONS (2)
  - HYPOAESTHESIA [None]
  - BACK PAIN [None]
